FAERS Safety Report 18789437 (Version 1)
Quarter: 2021Q1

REPORT INFORMATION
  Report Type: Spontaneous
  Country: FR (occurrence: FR)
  Receive Date: 20210126
  Receipt Date: 20210126
  Transmission Date: 20210419
  Serious: Yes (Other)
  Sender: FDA-Public Use
  Company Number: FR-MYLANLABS-2021M1004061

PATIENT
  Age: 85 Year
  Sex: Male
  Weight: 73 kg

DRUGS (2)
  1. DEXAMETHASONE. [Suspect]
     Active Substance: DEXAMETHASONE
     Indication: CORONAVIRUS INFECTION
     Dosage: 20 MILLIGRAM, QD
     Route: 048
     Dates: start: 20201116, end: 20201120
  2. DEXAMETHASONE MYLAN 4 MG/1 ML, SOLUTION INJECTABLE EN AMPOULE [Suspect]
     Active Substance: DEXAMETHASONE
     Indication: CORONAVIRUS INFECTION
     Dosage: 6 MILLILITER, QD
     Route: 042
     Dates: start: 20201105, end: 20201117

REACTIONS (2)
  - Off label use [Unknown]
  - Steroid diabetes [Recovered/Resolved]

NARRATIVE: CASE EVENT DATE: 20201105
